FAERS Safety Report 20900609 (Version 2)
Quarter: 2022Q3

REPORT INFORMATION
  Report Type: Spontaneous
  Country: CN (occurrence: CN)
  Receive Date: 20220601
  Receipt Date: 20220919
  Transmission Date: 20221027
  Serious: Yes (Death, Life-Threatening, Hospitalization, Other)
  Sender: FDA-Public Use
  Company Number: CN-MLMSERVICE-20220520-3571389-1

PATIENT
  Age: 27 Year
  Sex: Female

DRUGS (1)
  1. AMITRIPTYLINE [Suspect]
     Active Substance: AMITRIPTYLINE
     Indication: Product used for unknown indication
     Dosage: A TOTAL OF 3 EMPTY AMITRIPTYLINE BOTTLES

REACTIONS (7)
  - Cerebral congestion [Fatal]
  - Pulmonary congestion [Fatal]
  - Pulmonary oedema [Fatal]
  - Pulmonary haemorrhage [Fatal]
  - Brain oedema [Fatal]
  - Gastric haemorrhage [Fatal]
  - Suicidal ideation [Fatal]
